FAERS Safety Report 4559404-9 (Version None)
Quarter: 2005Q1

REPORT INFORMATION
  Report Type: 
  Country: None (occurrence: None)
  Receive Date: 20050119
  Receipt Date: 20050112
  Transmission Date: 20050727
  Serious: Yes (Hospitalization)
  Sender: FDA-Public Use
  Company Number: 2005012022

PATIENT
  Age: 79 Year
  Sex: Female

DRUGS (8)
  1. SPIRONOLACTONE [Suspect]
     Indication: ILL-DEFINED DISORDER
     Dosage: ORAL
     Route: 048
     Dates: end: 20041124
  2. ESOMEPRAZOLE MAGNESIUM (ESOMEPRAZOLE MAGNESIUM) [Concomitant]
  3. GAVISCON [Concomitant]
  4. MADOPAR (BENSERAZIDE HYDROCHLORIDE, LEVODOPA) [Concomitant]
  5. MIANSERIN HYDROCHLORIDE (MIANSERIN HYDROCHLORIDE) [Concomitant]
  6. ACETAMINOPHEN [Concomitant]
  7. HYDROXYZINE HCL [Concomitant]
  8. DESLORATADINE (DESLORATADINE) [Concomitant]

REACTIONS (1)
  - PEMPHIGOID [None]
